FAERS Safety Report 10589877 (Version 2)
Quarter: 2015Q1

REPORT INFORMATION
  Report Type: Spontaneous
  Country: AU (occurrence: AU)
  Receive Date: 20141118
  Receipt Date: 20150109
  Transmission Date: 20150720
  Serious: Yes (Hospitalization)
  Sender: FDA-Public Use
  Company Number: AU-009507513-1411AUS005938

PATIENT
  Sex: Female

DRUGS (1)
  1. FOLLITROPIN BETA [Suspect]
     Active Substance: FOLLITROPIN
     Dosage: 900 IU, UNK

REACTIONS (2)
  - Wrong technique in drug usage process [Unknown]
  - Accidental overdose [Unknown]
